FAERS Safety Report 7844819-3 (Version None)
Quarter: 2011Q4

REPORT INFORMATION
  Report Type: 
  Country: None (occurrence: None)
  Receive Date: 20111017
  Receipt Date: 20111003
  Transmission Date: 20120403
  Serious: Yes (Hospitalization)
  Sender: FDA-Public Use
  Company Number: 2011219442

PATIENT
  Age: 68 Year
  Sex: Male

DRUGS (6)
  1. ETOPOSIDE [Concomitant]
  2. TIMOLOL MALEATE [Concomitant]
  3. SIMVASTATIN [Concomitant]
  4. DALTEPARIN SODIUM [Suspect]
     Indication: LUNG NEOPLASM MALIGNANT
     Dates: start: 20110812
  5. CISPLATIN [Concomitant]
  6. VALSARTAN [Concomitant]

REACTIONS (2)
  - PYREXIA [None]
  - NEUTROPENIC SEPSIS [None]
